FAERS Safety Report 8137877-2 (Version None)
Quarter: 2012Q1

REPORT INFORMATION
  Report Type: 
  Country: None (occurrence: None)
  Receive Date: 20120215
  Receipt Date: 20120208
  Transmission Date: 20120608
  Serious: Yes (Hospitalization)
  Sender: FDA-Public Use
  Company Number: US-BAYER-2011-058730

PATIENT
  Age: 35 Year
  Sex: Female
  Weight: 106.58 kg

DRUGS (4)
  1. ADDERALL XR 10 [Concomitant]
     Indication: ATTENTION DEFICIT/HYPERACTIVITY DISORDER
     Dosage: 15 TO 20 MG
     Dates: start: 20060816, end: 20110114
  2. YASMIN [Suspect]
     Indication: MENOPAUSAL SYMPTOMS
  3. YASMIN [Suspect]
     Indication: ACNE
     Dosage: UNK
     Dates: start: 20070501, end: 20070621
  4. YASMIN [Suspect]
     Indication: PREMENSTRUAL SYNDROME

REACTIONS (11)
  - HEART RATE INCREASED [None]
  - THROMBOSIS [None]
  - CHEST DISCOMFORT [None]
  - DEEP VEIN THROMBOSIS [None]
  - EMOTIONAL DISTRESS [None]
  - FATIGUE [None]
  - PAIN [None]
  - FEAR [None]
  - PULMONARY EMBOLISM [None]
  - DYSPNOEA [None]
  - ANXIETY [None]
